FAERS Safety Report 9274700 (Version 1)
Quarter: 2013Q2

REPORT INFORMATION
  Report Type: Spontaneous
  Country: US (occurrence: None)
  Receive Date: 20130429
  Receipt Date: 20130429
  Transmission Date: 20140414
  Serious: Yes (Other)
  Sender: FDA-Public Use
  Company Number: 2013P1005025

PATIENT
  Age: 79 Year
  Sex: Male
  Weight: 81.65 kg

DRUGS (4)
  1. METHYLPREDNISOLONE [Suspect]
     Indication: INFLAMMATION
     Route: 048
     Dates: start: 20130314, end: 20130318
  2. RANITIDINE HCL [Concomitant]
  3. LISINOPRIL [Concomitant]
  4. SIMVASTATIN [Concomitant]

REACTIONS (6)
  - Myalgia [None]
  - Musculoskeletal stiffness [None]
  - Joint swelling [None]
  - Joint swelling [None]
  - Arthralgia [None]
  - Myalgia [None]
